FAERS Safety Report 9426131 (Version 1)
Quarter: 2013Q3

REPORT INFORMATION
  Report Type: Spontaneous
  Country: US (occurrence: US)
  Receive Date: 20130730
  Receipt Date: 20130730
  Transmission Date: 20140515
  Serious: No
  Sender: FDA-Public Use
  Company Number: US-BIOGENIDEC-2013BI069070

PATIENT
  Sex: Male

DRUGS (1)
  1. TYSABRI [Suspect]
     Indication: MULTIPLE SCLEROSIS
     Route: 042
     Dates: start: 20070912

REACTIONS (4)
  - Nervous system disorder [Not Recovered/Not Resolved]
  - Somnolence [Not Recovered/Not Resolved]
  - General symptom [Recovered/Resolved]
  - Arthritis [Not Recovered/Not Resolved]
